FAERS Safety Report 18844204 (Version 1)
Quarter: 2021Q1

REPORT INFORMATION
  Report Type: Report from Study
  Country: US (occurrence: US)
  Receive Date: 20210203
  Receipt Date: 20210203
  Transmission Date: 20210419
  Serious: No
  Sender: FDA-Public Use
  Company Number: US-EXELIXIS-CABO-20028068

PATIENT
  Sex: Male

DRUGS (3)
  1. CABOMETYX [Suspect]
     Active Substance: CABOZANTINIB S-MALATE
     Dosage: 40 MG, QD
     Route: 048
  2. CABOMETYX [Suspect]
     Active Substance: CABOZANTINIB S-MALATE
     Dosage: ALTERNATE 40MG AND 20 MG
     Route: 048
     Dates: end: 202002
  3. CABOMETYX [Suspect]
     Active Substance: CABOZANTINIB S-MALATE
     Indication: RENAL CANCER
     Dosage: 60 MG, QD
     Route: 048
     Dates: start: 201904

REACTIONS (8)
  - Tongue disorder [Not Recovered/Not Resolved]
  - Drug ineffective [Unknown]
  - Malignant neoplasm progression [Unknown]
  - Asthenia [Not Recovered/Not Resolved]
  - Sneezing [Not Recovered/Not Resolved]
  - Thyroid function test abnormal [Not Recovered/Not Resolved]
  - Neuropathy peripheral [Not Recovered/Not Resolved]
  - Palmar-plantar erythrodysaesthesia syndrome [Not Recovered/Not Resolved]
